FAERS Safety Report 19761014 (Version 1)
Quarter: 2021Q3

REPORT INFORMATION
  Report Type: Spontaneous
  Country: US (occurrence: US)
  Receive Date: 20210827
  Receipt Date: 20210827
  Transmission Date: 20211014
  Serious: Yes (Other)
  Sender: FDA-Public Use
  Company Number: None

PATIENT
  Age: 28 Year
  Sex: Female

DRUGS (1)
  1. ZAFEMY [Suspect]
     Active Substance: ETHINYL ESTRADIOL\NORELGESTROMIN
     Dosage: ?          OTHER FREQUENCY:ONCE WEEKLY;?
     Route: 062

REACTIONS (3)
  - Product adhesion issue [None]
  - Product quality issue [None]
  - Menstrual disorder [None]

NARRATIVE: CASE EVENT DATE: 20210822
